FAERS Safety Report 4537465-0 (Version None)
Quarter: 2004Q4

REPORT INFORMATION
  Report Type: 
  Country: None (occurrence: None)
  Receive Date: 20041216
  Receipt Date: 20040824
  Transmission Date: 20050328
  Serious: Yes (Hospitalization)
  Sender: FDA-Public Use
  Company Number: HQWYE559325AUG04

PATIENT
  Age: 33 Year

DRUGS (2)
  1. EFFEXOR XR [Suspect]
     Dosage: 25 CAPSULES OF 37.5 MG, ORAL
     Route: 048
     Dates: start: 20040801, end: 20040801
  2. ISOPROPYL ALCOHOL (ISOPROPANOL) [Suspect]
     Dosage: ONE PINT, ORAL
     Route: 048
     Dates: start: 20040801, end: 20040801

REACTIONS (2)
  - INTENTIONAL OVERDOSE [None]
  - MYDRIASIS [None]
